FAERS Safety Report 22018260 (Version 2)
Quarter: 2023Q1

REPORT INFORMATION
  Report Type: Spontaneous
  Country: JP (occurrence: JP)
  Receive Date: 20230221
  Receipt Date: 20230306
  Transmission Date: 20230418
  Serious: Yes (Hospitalization, Other)
  Sender: FDA-Public Use
  Company Number: JP-PRINSTON PHARMACEUTICAL INC.-2023PRN00065

PATIENT
  Age: 78 Year
  Sex: Male

DRUGS (15)
  1. DONEPEZIL [Suspect]
     Active Substance: DONEPEZIL
     Indication: Dementia with Lewy bodies
     Dosage: 3 MG, 1X/DAY
  2. PRAMIPEXOLE [Suspect]
     Active Substance: PRAMIPEXOLE
     Indication: Restless legs syndrome
     Dosage: 1.5 MG, 1X/DAY
  3. LEVODOPA [Concomitant]
     Active Substance: LEVODOPA
     Dosage: UNKNOWN
  4. LEVODOPA [Concomitant]
     Active Substance: LEVODOPA
     Dosage: INCREASED
  5. LEVODOPA [Concomitant]
     Active Substance: LEVODOPA
     Dosage: 300 MG, 1X/DAY
  6. LEVODOPA [Concomitant]
     Active Substance: LEVODOPA
     Dosage: 450 MG, 1X/DAY
  7. AMLODIPINE [Concomitant]
     Active Substance: AMLODIPINE BESYLATE
     Dosage: 2.5 MG
  8. CANDESARTAN [Concomitant]
     Active Substance: CANDESARTAN
     Dosage: 8 MG
  9. LOSASTATIN [Concomitant]
     Dosage: 2.5 MG
  10. FLECAINIDE [Concomitant]
     Active Substance: FLECAINIDE
     Dosage: 100 MG
  11. VIVEGRON [Concomitant]
     Dosage: 50 MG
  12. SERNITHINE [Concomitant]
     Dosage: 120 MG
  13. SENNOSIDES [Concomitant]
     Active Substance: SENNOSIDES
     Dosage: 24 MG
  14. MAGNESIUM OXIDE [Concomitant]
     Active Substance: MAGNESIUM OXIDE
     Dosage: 1000 MG
  15. ELOBIXIBAT [Concomitant]
     Active Substance: ELOBIXIBAT
     Dosage: 10 MG

REACTIONS (1)
  - Pleurothotonus [Recovering/Resolving]
